FAERS Safety Report 24096405 (Version 1)
Quarter: 2024Q3

REPORT INFORMATION
  Report Type: Spontaneous
  Country: US (occurrence: US)
  Receive Date: 20240716
  Receipt Date: 20240716
  Transmission Date: 20241016
  Serious: Yes (Death, Life-Threatening, Hospitalization, Other)
  Sender: RANBAXY
  Company Number: US-SUN PHARMACEUTICAL INDUSTRIES LTD-2024R1-456509

PATIENT
  Age: 61 Year
  Sex: Female

DRUGS (1)
  1. METFORMIN [Suspect]
     Active Substance: METFORMIN HYDROCHLORIDE
     Indication: Diabetes mellitus
     Dosage: UNK
     Route: 065

REACTIONS (8)
  - Cardiac arrest [Fatal]
  - Metabolic acidosis [Fatal]
  - Mental status changes [Fatal]
  - Hypoglycaemia [Fatal]
  - Hypotension [Fatal]
  - Toxicity to various agents [Fatal]
  - Brain injury [Fatal]
  - Brain death [Fatal]
